FAERS Safety Report 18145238 (Version 1)
Quarter: 2020Q3

REPORT INFORMATION
  Report Type: Spontaneous
  Country: US (occurrence: US)
  Receive Date: 20200813
  Receipt Date: 20200813
  Transmission Date: 20201103
  Serious: No
  Sender: FDA-Public Use
  Company Number: None

PATIENT
  Age: 78 Year
  Sex: Female
  Weight: 55.93 kg

DRUGS (11)
  1. PROBIOTIC DAILY [Concomitant]
  2. BACTRIM DS [Concomitant]
     Active Substance: SULFAMETHOXAZOLE\TRIMETHOPRIM
  3. NEXIUM [Concomitant]
     Active Substance: ESOMEPRAZOLE MAGNESIUM
  4. SOTALOL. [Concomitant]
     Active Substance: SOTALOL
  5. ROSUVASTATIN. [Concomitant]
     Active Substance: ROSUVASTATIN
  6. ASPIRIN ?LOW [Concomitant]
  7. VALACYCLOVIR [Concomitant]
     Active Substance: VALACYCLOVIR HYDROCHLORIDE
  8. NINLARO [Suspect]
     Active Substance: IXAZOMIB CITRATE
     Indication: PLASMA CELL MYELOMA
     Dosage: ?          OTHER FREQUENCY:DAYS 1 ,8 ,15;?
     Route: 048
     Dates: start: 20200219, end: 20200813
  9. VIT D [Concomitant]
     Active Substance: VITAMIN D NOS
  10. TRAMADOL. [Concomitant]
     Active Substance: TRAMADOL
  11. MULTI VITAMIN [Concomitant]
     Active Substance: VITAMINS

REACTIONS (4)
  - Vomiting [None]
  - Diarrhoea [None]
  - Gastrointestinal toxicity [None]
  - Nausea [None]

NARRATIVE: CASE EVENT DATE: 20200813
